FAERS Safety Report 23404207 (Version 3)
Quarter: 2024Q1

REPORT INFORMATION
  Report Type: Spontaneous
  Country: US (occurrence: None)
  Receive Date: 20240116
  Receipt Date: 20240313
  Transmission Date: 20240410
  Serious: No
  Sender: FDA-Public Use
  Company Number: 2024A010407

PATIENT
  Sex: Female
  Weight: 54.4 kg

DRUGS (1)
  1. FARXIGA [Suspect]
     Active Substance: DAPAGLIFLOZIN PROPANEDIOL
     Indication: Blood glucose abnormal
     Route: 048
     Dates: start: 20231201

REACTIONS (3)
  - Blood glucose increased [Unknown]
  - Hunger [Unknown]
  - Drug ineffective [Unknown]
